FAERS Safety Report 8320682-1 (Version None)
Quarter: 2012Q2

REPORT INFORMATION
  Report Type: 
  Country: None (occurrence: None)
  Receive Date: 20120430
  Receipt Date: 20120419
  Transmission Date: 20120825
  Serious: Yes (Death)
  Sender: FDA-Public Use
  Company Number: US-CELGENEUS-163-21880-12040615

PATIENT
  Sex: Female
  Weight: 79.359 kg

DRUGS (11)
  1. DILTIAZEM [Concomitant]
     Route: 065
  2. CARDIZEM [Concomitant]
     Indication: HYPERTENSION
     Dosage: 180 MILLIGRAM
     Route: 048
  3. METFORMIN HCL [Concomitant]
     Route: 065
  4. CARVEDILOL [Concomitant]
     Route: 065
  5. ZESTRIL [Concomitant]
     Indication: HYPERTENSION
     Dosage: 5 MILLIGRAM
     Route: 048
  6. REVLIMID [Suspect]
     Indication: MULTIPLE MYELOMA
     Dosage: 5 MILLIGRAM
     Route: 048
     Dates: start: 20120129, end: 20120309
  7. COZAAR [Concomitant]
     Route: 065
  8. LEVEMIR [Concomitant]
     Dosage: 10 UNITS
     Route: 058
  9. GLIPIZIDE [Concomitant]
     Route: 065
  10. CATAPRES [Concomitant]
     Indication: HYPERTENSION
     Dosage: .1 MILLIGRAM
     Route: 048
  11. PROVENTIL [Concomitant]
     Indication: ASTHMA
     Dosage: 2PUFFS
     Route: 065

REACTIONS (1)
  - MULTIPLE MYELOMA [None]
